FAERS Safety Report 24923639 (Version 7)
Quarter: 2025Q4

REPORT INFORMATION
  Report Type: Report from Study
  Country: JP (occurrence: None)
  Receive Date: 20250204
  Receipt Date: 20251127
  Transmission Date: 20260117
  Serious: Yes (Hospitalization, Other)
  Sender: CHIESI
  Company Number: JP-CHIESI-2019CHF06625

PATIENT
  Age: 18 Year
  Sex: Female

DRUGS (82)
  1. ELAPEGADEMASE-LVLR [Suspect]
     Active Substance: ELAPEGADEMASE-LVLR
     Indication: Combined immunodeficiency
     Dosage: UNK
     Dates: start: 20160309, end: 20190322
  2. ELAPEGADEMASE-LVLR [Suspect]
     Active Substance: ELAPEGADEMASE-LVLR
     Dosage: 0.3 MILLIGRAM/KILOGRAM, QW
     Dates: start: 20190327, end: 20190529
  3. ELAPEGADEMASE-LVLR [Suspect]
     Active Substance: ELAPEGADEMASE-LVLR
     Dosage: 0.353 MILLIGRAM/KILOGRAM, QW
     Dates: start: 20190605, end: 20190805
  4. ELAPEGADEMASE-LVLR [Suspect]
     Active Substance: ELAPEGADEMASE-LVLR
     Dosage: 0.361 MILLIGRAM/KILOGRAM, QW
     Dates: start: 20190814, end: 20190828
  5. ELAPEGADEMASE-LVLR [Suspect]
     Active Substance: ELAPEGADEMASE-LVLR
     Dosage: 0.352 MILLIGRAM/KILOGRAM, QW
     Dates: start: 20190904, end: 20190918
  6. ELAPEGADEMASE-LVLR [Suspect]
     Active Substance: ELAPEGADEMASE-LVLR
     Dosage: 0.333 MILLIGRAM/KILOGRAM, QW
     Dates: start: 20190925, end: 20191003
  7. ELAPEGADEMASE-LVLR [Suspect]
     Active Substance: ELAPEGADEMASE-LVLR
     Dosage: 0.336 MILLIGRAM/KILOGRAM, QW
     Dates: start: 20191009, end: 20191016
  8. ELAPEGADEMASE-LVLR [Suspect]
     Active Substance: ELAPEGADEMASE-LVLR
     Dosage: 0.334 MILLIGRAM/KILOGRAM, QW
     Dates: start: 20191021, end: 20191204
  9. ELAPEGADEMASE-LVLR [Suspect]
     Active Substance: ELAPEGADEMASE-LVLR
     Dosage: 0.303 MILLIGRAM/KILOGRAM, QW
     Dates: start: 20191211, end: 20191211
  10. ELAPEGADEMASE-LVLR [Suspect]
     Active Substance: ELAPEGADEMASE-LVLR
     Dosage: 0.278 MILLIGRAM/KILOGRAM, QW
     Dates: start: 20191218, end: 20200129
  11. ELAPEGADEMASE-LVLR [Suspect]
     Active Substance: ELAPEGADEMASE-LVLR
     Dosage: 0.247 MILLIGRAM/KILOGRAM, QW
     Dates: start: 20200205, end: 20200205
  12. ELAPEGADEMASE-LVLR [Suspect]
     Active Substance: ELAPEGADEMASE-LVLR
     Dosage: 0.242 MILLIGRAM/KILOGRAM, QW
     Dates: start: 20200212, end: 20200325
  13. ELAPEGADEMASE-LVLR [Suspect]
     Active Substance: ELAPEGADEMASE-LVLR
     Dosage: 0.247 MILLIGRAM/KILOGRAM, QW
     Dates: start: 20200401, end: 20200826
  14. ELAPEGADEMASE-LVLR [Suspect]
     Active Substance: ELAPEGADEMASE-LVLR
     Dosage: 0.25 MILLIGRAM/KILOGRAM, QW
     Dates: start: 20200902, end: 20201008
  15. ELAPEGADEMASE-LVLR [Suspect]
     Active Substance: ELAPEGADEMASE-LVLR
     Dosage: 0.247 MILLIGRAM/KILOGRAM, QW
     Dates: start: 20201013, end: 20210415
  16. ELAPEGADEMASE-LVLR [Suspect]
     Active Substance: ELAPEGADEMASE-LVLR
     Dosage: 0.256 MILLIGRAM/KILOGRAM, QW
     Dates: start: 20210422, end: 20210603
  17. ELAPEGADEMASE-LVLR [Suspect]
     Active Substance: ELAPEGADEMASE-LVLR
     Dosage: 0.26 MILLIGRAM/KILOGRAM, QW
     Dates: start: 20210609, end: 20210615
  18. ELAPEGADEMASE-LVLR [Suspect]
     Active Substance: ELAPEGADEMASE-LVLR
     Dosage: 0.25 MILLIGRAM/KILOGRAM, QW
     Dates: start: 20210624, end: 20210819
  19. ELAPEGADEMASE-LVLR [Suspect]
     Active Substance: ELAPEGADEMASE-LVLR
     Dosage: 0.24 MILLIGRAM/KILOGRAM, QW
     Dates: start: 20210825, end: 20210908
  20. ELAPEGADEMASE-LVLR [Suspect]
     Active Substance: ELAPEGADEMASE-LVLR
     Dosage: 0.25 MILLIGRAM/KILOGRAM, QW
     Dates: start: 20210914, end: 20220209
  21. ELAPEGADEMASE-LVLR [Suspect]
     Active Substance: ELAPEGADEMASE-LVLR
     Dosage: 0.26 MILLIGRAM/KILOGRAM, QW
     Dates: start: 20220217, end: 20220602
  22. ELAPEGADEMASE-LVLR [Suspect]
     Active Substance: ELAPEGADEMASE-LVLR
     Dosage: 0.261 MILLIGRAM/KILOGRAM, QW
     Dates: start: 20220609, end: 20220810
  23. ELAPEGADEMASE-LVLR [Suspect]
     Active Substance: ELAPEGADEMASE-LVLR
     Dosage: 0.256 MILLIGRAM/KILOGRAM, QW
     Dates: start: 20220818, end: 20220824
  24. ELAPEGADEMASE-LVLR [Suspect]
     Active Substance: ELAPEGADEMASE-LVLR
     Dosage: 0.256 MILLIGRAM/KILOGRAM, QW
     Dates: start: 20220905, end: 20230511
  25. ELAPEGADEMASE-LVLR [Suspect]
     Active Substance: ELAPEGADEMASE-LVLR
     Dosage: 0.268 MILLIGRAM/KILOGRAM, QW
     Dates: start: 20230518, end: 20231122
  26. ELAPEGADEMASE-LVLR [Suspect]
     Active Substance: ELAPEGADEMASE-LVLR
     Dosage: 0.255 MILLIGRAM/KILOGRAM, QW
     Dates: start: 20231130, end: 20240111
  27. ELAPEGADEMASE-LVLR [Suspect]
     Active Substance: ELAPEGADEMASE-LVLR
     Dosage: 0.253 MILLIGRAM/KILOGRAM, QW
     Dates: start: 20240118, end: 20240305
  28. ELAPEGADEMASE-LVLR [Suspect]
     Active Substance: ELAPEGADEMASE-LVLR
     Dosage: 0.264 MILLIGRAM/KILOGRAM, QW
     Dates: start: 20240314, end: 20240627
  29. ELAPEGADEMASE-LVLR [Suspect]
     Active Substance: ELAPEGADEMASE-LVLR
     Dosage: 0.259 MILLIGRAM/KILOGRAM, QW
     Dates: start: 20240704, end: 20240926
  30. ELAPEGADEMASE-LVLR [Suspect]
     Active Substance: ELAPEGADEMASE-LVLR
     Dosage: 0.255 MILLIGRAM/KILOGRAM, QW
     Dates: start: 20241003, end: 20241121
  31. ELAPEGADEMASE-LVLR [Suspect]
     Active Substance: ELAPEGADEMASE-LVLR
     Dosage: 0.247 MILLIGRAM/KILOGRAM, QW
     Dates: start: 20241128
  32. AMPHOTERICIN B [Concomitant]
     Active Substance: AMPHOTERICIN B
     Indication: Oral fungal infection
     Dosage: UNK UNK, QD
     Dates: start: 20161214
  33. AMPHOTERICIN B [Concomitant]
     Active Substance: AMPHOTERICIN B
     Indication: Oral candidiasis
     Dosage: UNK UNK, QD
     Dates: start: 20180712, end: 20200730
  34. ITRACONAZOLE [Concomitant]
     Active Substance: ITRACONAZOLE
     Indication: Bronchopulmonary aspergillosis
     Dosage: UNK UNK, QD
     Dates: start: 20160824
  35. ITRACONAZOLE [Concomitant]
     Active Substance: ITRACONAZOLE
     Dosage: UNK UNK, QD
     Dates: start: 20180712, end: 20220623
  36. DESMOPRESSIN ACETATE [Concomitant]
     Active Substance: DESMOPRESSIN ACETATE
     Indication: Enuresis
     Dosage: 120 MICROGRAM, QD
     Dates: start: 20160325
  37. HIZENTRA [Concomitant]
     Active Substance: HUMAN IMMUNOGLOBULIN G
     Indication: Adenosine deaminase
     Dosage: UNK UNK, QW
     Dates: start: 20140815
  38. HIZENTRA [Concomitant]
     Active Substance: HUMAN IMMUNOGLOBULIN G
     Indication: Hypogammaglobulinaemia
     Dosage: 8 GRAM, QW
     Dates: start: 20160921
  39. Depas [Concomitant]
     Indication: Anxiety disorder
     Dosage: 0.5 MILLIGRAM, QD
     Dates: start: 20160127
  40. Depas [Concomitant]
     Dosage: 1 MILLIGRAM, QD
     Dates: start: 20180712
  41. FLUVOXAMINE [Concomitant]
     Active Substance: FLUVOXAMINE
     Indication: Depressive symptom
     Dosage: 50 MILLIGRAM, QD
     Dates: start: 20160318
  42. FLUVOXAMINE [Concomitant]
     Active Substance: FLUVOXAMINE
     Dosage: 50 MILLIGRAM, QD
     Dates: start: 20180712, end: 20190917
  43. SODIUM FERROUS CITRATE [Concomitant]
     Active Substance: SODIUM FERROUS CITRATE
     Indication: Iron deficiency anaemia
     Dosage: 50 MILLIGRAM, QD
     Dates: start: 20170307
  44. ZINC [Concomitant]
     Active Substance: ZINC
     Indication: Abdominal discomfort
     Dosage: 50 MILLIGRAM, QD
     Dates: start: 20180314
  45. ZINC [Concomitant]
     Active Substance: ZINC
     Indication: Malnutrition
     Dosage: 50 MILLIGRAM, QD
     Dates: start: 20180723
  46. URSODIOL [Concomitant]
     Active Substance: URSODIOL
     Indication: Hepatic function abnormal
     Dosage: 200 MILLIGRAM, QD
     Dates: start: 20160824
  47. SULFAMETHOXAZOLE\TRIMETHOPRIM [Concomitant]
     Active Substance: SULFAMETHOXAZOLE\TRIMETHOPRIM
     Indication: Infection prophylaxis
     Dosage: 120 MILLIGRAM, QD
     Dates: start: 20180712
  48. SULFAMETHOXAZOLE\TRIMETHOPRIM [Concomitant]
     Active Substance: SULFAMETHOXAZOLE\TRIMETHOPRIM
     Dosage: 1 DOSAGE FORM, QD
     Dates: start: 20180717
  49. SULFAMETHOXAZOLE\TRIMETHOPRIM [Concomitant]
     Active Substance: SULFAMETHOXAZOLE\TRIMETHOPRIM
     Dosage: 0.5 DOSAGE FORM, QD
     Dates: start: 20180717
  50. LANSOPRAZOLE [Concomitant]
     Active Substance: LANSOPRAZOLE
     Indication: Gastrointestinal disorder prophylaxis
     Dosage: 15 MILLIGRAM, QD
     Dates: start: 20180713, end: 20190820
  51. LEVOCARNITINE [Concomitant]
     Active Substance: LEVOCARNITINE
     Indication: Malnutrition
     Dosage: UNK UNK, QD
     Dates: start: 20180712
  52. LEVOCARNITINE [Concomitant]
     Active Substance: LEVOCARNITINE
     Dosage: 27 MILLILITER, QD
     Dates: start: 20180717
  53. GLYCOSAMINOGLYCANS [Concomitant]
     Active Substance: GLYCOSAMINOGLYCANS
     Indication: Skin disorder prophylaxis
     Dosage: UNK UNK, QD
     Dates: start: 20171220
  54. GLYCOSAMINOGLYCANS [Concomitant]
     Active Substance: GLYCOSAMINOGLYCANS
     Dosage: UNK
  55. Heparinoid [Concomitant]
     Indication: Skin disorder prophylaxis
     Dosage: UNK
  56. CALONAL [Concomitant]
     Active Substance: ACETAMINOPHEN
     Indication: Neutropenia
     Dosage: UNK UNK, PRN
     Dates: start: 20180602
  57. SODIUM FERROUS CITRATE [Concomitant]
     Active Substance: SODIUM FERROUS CITRATE
     Indication: Bone marrow failure
     Dosage: 100 MILLIGRAM, QD
     Dates: start: 20180712, end: 20200318
  58. Urso 1a pharma [Concomitant]
     Indication: Hepatic function abnormal
     Dosage: 200 MILLIGRAM, QD
     Dates: start: 20180712
  59. ZOLPIDEM TARTRATE [Concomitant]
     Active Substance: ZOLPIDEM TARTRATE
     Indication: Anxiety disorder
     Dosage: UNK UNK, PRN
     Dates: start: 20190127
  60. AMINO ACIDS\CARBOHYDRATES\MINERALS\SOYBEAN OIL\VITAMINS [Concomitant]
     Active Substance: AMINO ACIDS\CARBOHYDRATES\MINERALS\SOYBEAN OIL\VITAMINS
     Indication: Malnutrition
     Dosage: 2 DOSAGE FORM, QD
     Dates: start: 20190918, end: 20211013
  61. AMINO ACIDS\CARBOHYDRATES\MINERALS\SOYBEAN OIL\VITAMINS [Concomitant]
     Active Substance: AMINO ACIDS\CARBOHYDRATES\MINERALS\SOYBEAN OIL\VITAMINS
     Dosage: 1 DOSAGE FORM, QD
     Dates: start: 20211014
  62. TAMIFLU [Concomitant]
     Active Substance: OSELTAMIVIR PHOSPHATE
     Indication: Antiviral prophylaxis
     Dosage: 1 DOSAGE FORM, QD
     Dates: start: 20191127, end: 20191203
  63. PRIMPERAN [Concomitant]
     Active Substance: METOCLOPRAMIDE HYDROCHLORIDE
     Indication: Gastrointestinal disorder
     Dosage: UNK, PRN
     Dates: start: 20180508, end: 20180730
  64. TRIMEBUTINE [Concomitant]
     Active Substance: TRIMEBUTINE
     Indication: Gastrointestinal disorder
     Dosage: 200 MILLIGRAM, QD
     Dates: start: 20190322, end: 20190828
  65. MOSAPRIDE CITRATE [Concomitant]
     Active Substance: MOSAPRIDE CITRATE
     Indication: Gastrointestinal disorder
     Dosage: 10 MILLIGRAM, QD
     Dates: start: 20190322, end: 20190819
  66. MOSAPRIDE CITRATE [Concomitant]
     Active Substance: MOSAPRIDE CITRATE
     Dosage: 15 MILLIGRAM, QD
     Dates: start: 20191009
  67. FUNGIZONE [Concomitant]
     Active Substance: AMPHOTERICIN B
     Indication: Oral candidiasis
     Dosage: 2 MILLILITER, QD
     Dates: start: 20200730
  68. NAUZELIN [Concomitant]
     Active Substance: DOMPERIDONE
     Indication: Gastrointestinal disorder
     Dosage: 10 MILLIGRAM, QD
     Dates: start: 20201217
  69. SODIUM FERROUS CITRATE [Concomitant]
     Active Substance: SODIUM FERROUS CITRATE
     Indication: Bone marrow failure
     Dosage: 100 MILLIGRAM, QD
     Dates: start: 20210922
  70. KETALAR [Concomitant]
     Active Substance: KETAMINE HYDROCHLORIDE
     Indication: Product used for unknown indication
     Dosage: 3 MILLILITER, QD
     Route: 065
     Dates: start: 20220216, end: 20220216
  71. XYLOCAINE [Concomitant]
     Active Substance: LIDOCAINE HYDROCHLORIDE
     Indication: Product used for unknown indication
     Dosage: 10 MILLILITER, QD
     Route: 065
     Dates: start: 20220216, end: 20220216
  72. ATROPINE SULFATE [Concomitant]
     Active Substance: ATROPINE SULFATE
     Indication: Product used for unknown indication
     Dosage: 0.5 MILLILITER, QD
     Route: 065
     Dates: start: 20220216, end: 20220216
  73. MIDAZOLAM [Concomitant]
     Active Substance: MIDAZOLAM
     Indication: Product used for unknown indication
     Dosage: 2 MILLILITER, QD
     Route: 065
     Dates: start: 20220216, end: 20220216
  74. VEEN D [Concomitant]
     Active Substance: CALCIUM CHLORIDE\DEXTROSE\POTASSIUM CHLORIDE\SODIUM ACETATE\SODIUM CHLORIDE
     Indication: Product used for unknown indication
     Dosage: 500 MILLILITER, QD
     Route: 065
     Dates: start: 20220216, end: 20220217
  75. ITRACONAZOLE [Concomitant]
     Active Substance: ITRACONAZOLE
     Indication: Bronchopulmonary aspergillosis
     Dosage: 100 MILLIGRAM, QD
     Dates: start: 20220624
  76. MIYA-BM [Concomitant]
     Active Substance: CLOSTRIDIUM BUTYRICUM SPORES STRAIN M-55
     Indication: Gastrointestinal disorder
     Dosage: 2 GRAM, QD
     Route: 065
     Dates: start: 20230810, end: 20230817
  77. MIDAZOLAM [Concomitant]
     Active Substance: MIDAZOLAM
     Indication: Biopsy bone marrow
     Dosage: 2 MILLILITER, QD
     Route: 065
     Dates: start: 20240314, end: 20240314
  78. ATROPINE SULFATE [Concomitant]
     Active Substance: ATROPINE SULFATE
     Indication: Biopsy bone marrow
     Dosage: 0.5 MILLILITER, QD
     Route: 065
     Dates: start: 20240314, end: 20240314
  79. Lidocaine hydrochloride nissin [Concomitant]
     Indication: Biopsy bone marrow
     Dosage: 10 MILLILITER, QD
     Route: 065
     Dates: start: 20240314, end: 20240314
  80. CALCIUM GLUCONATE\DEXTROSE\MAGNESIUM CHLORIDE\POTASSIUM CHLORIDE\SODIU [Concomitant]
     Active Substance: CALCIUM GLUCONATE\DEXTROSE\MAGNESIUM CHLORIDE\POTASSIUM CHLORIDE\SODIUM ACETATE\SODIUM CHLORIDE\TRIS
     Indication: Biopsy bone marrow
     Dosage: 0.4 DOSAGE FORM, QD
     Route: 065
     Dates: start: 20240314, end: 20240314
  81. KETALAR [Concomitant]
     Active Substance: KETAMINE HYDROCHLORIDE
     Indication: Biopsy bone marrow
     Dosage: 3 MILLILITER, QD
     Route: 065
     Dates: start: 20240314, end: 20240314
  82. SCOPOLAMINE [Concomitant]
     Active Substance: SCOPOLAMINE
     Indication: Gastrointestinal disorder
     Dosage: UNK, PRN
     Dates: start: 20170322

REACTIONS (48)
  - Hypokalaemia [Recovered/Resolved]
  - Pharyngitis [Recovered/Resolved]
  - Pyrexia [Recovered/Resolved]
  - Breast ulceration [Recovered/Resolved]
  - Pyrexia [Recovered/Resolved]
  - Pyrexia [Recovered/Resolved]
  - Contusion [Recovered/Resolved]
  - Malpositioned teeth [Recovered/Resolved]
  - Hypothyroidism [Not Recovered/Not Resolved]
  - Aspergillus infection [Recovered/Resolved]
  - Bronchiectasis [Not Recovered/Not Resolved]
  - White blood cell count decreased [Recovering/Resolving]
  - Liver disorder [Recovering/Resolving]
  - Stomatitis [Recovered/Resolved]
  - Neuropathy peripheral [Unknown]
  - Compression fracture [Recovered/Resolved]
  - Neutropenia [Recovered/Resolved]
  - Neutropenia [Recovered/Resolved]
  - Constipation [Not Recovered/Not Resolved]
  - Depressive symptom [Not Recovered/Not Resolved]
  - Pharyngeal ulceration [Recovered/Resolved]
  - Stomatitis [Recovered/Resolved]
  - Muscular weakness [Recovered/Resolved]
  - Sinusitis [Recovering/Resolving]
  - Headache [Recovered/Resolved]
  - Sinusitis [Recovering/Resolving]
  - Anaemia [Not Recovered/Not Resolved]
  - Stomatitis [Recovering/Resolving]
  - Upper respiratory tract inflammation [Recovered/Resolved]
  - Sinusitis [Not Recovered/Not Resolved]
  - Onycholysis [Recovered/Resolved]
  - Irritable bowel syndrome [Recovering/Resolving]
  - Nail pigmentation [Not Recovered/Not Resolved]
  - Decreased appetite [Unknown]
  - Weight decreased [Unknown]
  - COVID-19 [Recovered/Resolved]
  - Headache [Recovering/Resolving]
  - Stomatitis [Recovering/Resolving]
  - Seborrhoeic dermatitis [Recovering/Resolving]
  - COVID-19 [Recovered/Resolved]
  - Seborrhoeic dermatitis [Not Recovered/Not Resolved]
  - Tetany [Not Recovered/Not Resolved]
  - Hypocalcaemia [Not Recovered/Not Resolved]
  - Dermatitis [Unknown]
  - COVID-19 [Not Recovered/Not Resolved]
  - Haemoptysis [Recovered/Resolved]
  - Arthralgia [Recovered/Resolved]
  - Otitis externa [Recovered/Resolved]

NARRATIVE: CASE EVENT DATE: 20170906
